FAERS Safety Report 8581272-9 (Version None)
Quarter: 2012Q3

REPORT INFORMATION
  Report Type: 
  Country: None (occurrence: None)
  Receive Date: 20120809
  Receipt Date: 20120806
  Transmission Date: 20120928
  Serious: Yes (Other)
  Sender: FDA-Public Use
  Company Number: PHHY2012CA010982

PATIENT
  Sex: Female
  Weight: 49.887 kg

DRUGS (2)
  1. DOMPERIDONE [Concomitant]
     Dates: start: 20120725
  2. SANDOSTATIN LAR [Suspect]
     Indication: PANCREATIC CARCINOMA METASTATIC
     Dosage: 30 MG, EVERY 4 WEEKS
     Route: 030
     Dates: start: 20120106

REACTIONS (12)
  - ERUCTATION [None]
  - LIMB DISCOMFORT [None]
  - POLLAKIURIA [None]
  - PALLOR [None]
  - DIARRHOEA [None]
  - EYE PAIN [None]
  - HERPES ZOSTER [None]
  - WEIGHT DECREASED [None]
  - MUSCULOSKELETAL DISCOMFORT [None]
  - COCCYDYNIA [None]
  - EYELID PTOSIS [None]
  - VOMITING [None]
